FAERS Safety Report 17614211 (Version 2)
Quarter: 2023Q4

REPORT INFORMATION
  Report Type: Spontaneous
  Country: CN (occurrence: CN)
  Receive Date: 20200402
  Receipt Date: 20231202
  Transmission Date: 20240110
  Serious: Yes (Other)
  Sender: FDA-Public Use
  Company Number: CN-BAYER-2020-053952

PATIENT
  Age: 79 Year
  Sex: Female

DRUGS (2)
  1. AVELOX [Suspect]
     Active Substance: MOXIFLOXACIN HYDROCHLORIDE
     Indication: Pneumonia viral
     Dosage: 0.4 G, QD
     Route: 041
     Dates: start: 20200207, end: 20200214
  2. METHYLPREDNISOLONE SODIUM SUCCINATE [Suspect]
     Active Substance: METHYLPREDNISOLONE SODIUM SUCCINATE
     Indication: Infection
     Dosage: 40 MG, QD
     Route: 041
     Dates: start: 20200207, end: 20200214

REACTIONS (5)
  - Delirium [Recovering/Resolving]
  - Dysphoria [Recovering/Resolving]
  - Hallucination, visual [Recovering/Resolving]
  - Product use in unapproved indication [None]
  - Off label use [None]

NARRATIVE: CASE EVENT DATE: 20200207
